FAERS Safety Report 4935491-0 (Version None)
Quarter: 2006Q1

REPORT INFORMATION
  Report Type: 
  Country: None (occurrence: None)
  Receive Date: 20060307
  Receipt Date: 20050818
  Transmission Date: 20060701
  Serious: No
  Sender: FDA-Public Use
  Company Number: US-GLAXOSMITHKLINE-A0570857A

PATIENT
  Age: 48 Year
  Sex: Female

DRUGS (2)
  1. REQUIP [Suspect]
     Dosage: .25MG PER DAY
     Route: 048
     Dates: start: 20050731
  2. METOPROLOL [Concomitant]

REACTIONS (3)
  - ABNORMAL DREAMS [None]
  - ANGER [None]
  - DRUG INEFFECTIVE [None]
